FAERS Safety Report 18445776 (Version 1)
Quarter: 2020Q4

REPORT INFORMATION
  Report Type: Spontaneous
  Country: US (occurrence: US)
  Receive Date: 20201029
  Receipt Date: 20201029
  Transmission Date: 20210114
  Serious: No
  Sender: FDA-Public Use
  Company Number: None

PATIENT
  Age: 57 Year
  Sex: Female
  Weight: 91.2 kg

DRUGS (1)
  1. TAXOTERE [Suspect]
     Active Substance: DOCETAXEL
     Indication: BREAST CANCER
     Dates: start: 20201021, end: 20201021

REACTIONS (6)
  - Back pain [None]
  - Blood pressure increased [None]
  - Feeling hot [None]
  - Heart rate increased [None]
  - Chest discomfort [None]
  - Flushing [None]

NARRATIVE: CASE EVENT DATE: 20201021
